FAERS Safety Report 21459411 (Version 1)
Quarter: 2022Q4

REPORT INFORMATION
  Report Type: Spontaneous
  Country: US (occurrence: None)
  Receive Date: 20221014
  Receipt Date: 20221014
  Transmission Date: 20230113
  Serious: Yes (Hospitalization)
  Sender: FDA-Public Use
  Company Number: None

PATIENT
  Age: 86 Year
  Sex: Female
  Weight: 70.2 kg

DRUGS (10)
  1. HYDRALAZINE [Suspect]
     Active Substance: HYDRALAZINE HYDROCHLORIDE
     Dosage: FREQUENCY : TWICE A DAY;?
     Route: 048
     Dates: end: 20221009
  2. AMLODIPINE [Concomitant]
     Active Substance: AMLODIPINE BESYLATE
  3. ATORVASTATIN [Concomitant]
     Active Substance: ATORVASTATIN
  4. CLONIDINE [Concomitant]
     Active Substance: CLONIDINE
  5. FUROSEMIDE [Concomitant]
     Active Substance: FUROSEMIDE
  6. insulin glargine (Lantus Solostar) [Concomitant]
  7. ISOSORBIDE MONONITRATE [Concomitant]
     Active Substance: ISOSORBIDE MONONITRATE
  8. LEVOTHYROXINE [Concomitant]
     Active Substance: LEVOTHYROXINE
  9. METOPROLOL [Concomitant]
     Active Substance: METOPROLOL
  10. SITAGLIPTIN [Concomitant]
     Active Substance: SITAGLIPTIN

REACTIONS (6)
  - Acute kidney injury [None]
  - Vasculitis [None]
  - Biopsy kidney [None]
  - Glomerulonephritis rapidly progressive [None]
  - Renal tubular necrosis [None]
  - Nephrosclerosis [None]

NARRATIVE: CASE EVENT DATE: 20221007
